FAERS Safety Report 6963434-7 (Version None)
Quarter: 2010Q3

REPORT INFORMATION
  Report Type: 
  Country: None (occurrence: None)
  Receive Date: 20100902
  Receipt Date: 20100823
  Transmission Date: 20110219
  Serious: Yes (Other)
  Sender: FDA-Public Use
  Company Number: B0661881A

PATIENT
  Age: 89 Year
  Sex: Male

DRUGS (16)
  1. PAXIL [Suspect]
     Indication: DEPRESSION
     Dosage: 20MG PER DAY
     Route: 048
     Dates: end: 20100518
  2. PAXIL [Suspect]
     Dosage: 20MG THREE TIMES PER DAY
     Route: 048
     Dates: start: 20100519, end: 20100615
  3. GLICLAZIDE [Concomitant]
     Dosage: 40MG PER DAY
     Route: 048
     Dates: end: 20100511
  4. NORVASC [Concomitant]
     Dosage: 5MG PER DAY
     Route: 048
     Dates: end: 20100511
  5. DIOVAN [Concomitant]
     Dosage: 80MG PER DAY
     Route: 048
     Dates: start: 20100512, end: 20100519
  6. BLOPRESS [Concomitant]
     Dosage: 8MG PER DAY
     Route: 048
     Dates: end: 20100511
  7. CASODEX [Concomitant]
     Dosage: 80MG PER DAY
     Route: 048
  8. AMINO ACID INJ [Concomitant]
     Dosage: 3IUAX PER DAY
     Route: 048
  9. UNKNOWN [Concomitant]
  10. SILODOSIN [Concomitant]
     Dosage: 4MG PER DAY
     Route: 048
  11. BICALUTAMIDE [Concomitant]
     Dosage: 80MG PER DAY
     Route: 048
     Dates: start: 20100512
  12. CORINAEL [Concomitant]
     Dosage: 20MG PER DAY
     Route: 048
     Dates: start: 20100519
  13. UNKNOWN MEDICATION [Concomitant]
  14. AMOXICILLIN [Concomitant]
     Dosage: 2IUAX PER DAY
     Route: 048
  15. CEFOTIAM HYDROCHLORIDE [Concomitant]
     Dosage: 2G PER DAY
     Route: 042
     Dates: start: 20100329, end: 20100402
  16. UNKNOWN [Concomitant]
     Dosage: 2G PER DAY
     Route: 042
     Dates: start: 20100611, end: 20100618

REACTIONS (1)
  - JAUNDICE [None]
